FAERS Safety Report 4509334-3 (Version None)
Quarter: 2004Q4

REPORT INFORMATION
  Report Type: 
  Country: None (occurrence: None)
  Receive Date: 20041123
  Receipt Date: 20041118
  Transmission Date: 20050328
  Serious: Yes (Disabling)
  Sender: FDA-Public Use
  Company Number: US-MERCK-0411USA03249

PATIENT
  Age: 57 Year
  Sex: Female

DRUGS (11)
  1. VIOXX [Suspect]
     Indication: ARTHRITIS
     Route: 048
     Dates: start: 19990101, end: 20040923
  2. NEXIUM [Concomitant]
     Route: 065
  3. METHOTREXATE [Concomitant]
     Route: 065
  4. FUROSEMIDE [Concomitant]
     Route: 065
  5. LEVOXYL [Concomitant]
     Route: 065
  6. MOBIC [Concomitant]
     Route: 065
  7. CARDIS [Concomitant]
     Route: 065
  8. CLARINEX [Concomitant]
     Route: 065
  9. PRIMIDONE [Concomitant]
     Route: 065
  10. FOLGARD [Concomitant]
     Route: 065
  11. LEXAPRO [Concomitant]
     Route: 065

REACTIONS (2)
  - CARDIAC FAILURE [None]
  - HEART INJURY [None]
